FAERS Safety Report 18898561 (Version 1)
Quarter: 2021Q1

REPORT INFORMATION
  Report Type: Spontaneous
  Country: FR (occurrence: FR)
  Receive Date: 20210216
  Receipt Date: 20210216
  Transmission Date: 20210420
  Serious: Yes (Hospitalization, Other)
  Sender: FDA-Public Use
  Company Number: FR-SA-2021SA052254

PATIENT
  Age: 80 Year
  Sex: Female

DRUGS (4)
  1. TRESIBA [Concomitant]
     Active Substance: INSULIN DEGLUDEC
     Dosage: 18 IU
  2. DOLIPRANE [Concomitant]
     Active Substance: ACETAMINOPHEN
     Dosage: UNK
  3. APIDRA [Suspect]
     Active Substance: INSULIN GLULISINE
     Indication: DIABETES MELLITUS
     Dosage: 6 UNITS IN THE MORNING AND 6 UNITS AT NOON, Q12H
  4. KETOPROFEN. [Concomitant]
     Active Substance: KETOPROFEN
     Dosage: UNK

REACTIONS (5)
  - Lung disorder [Unknown]
  - Diabetes mellitus [Unknown]
  - Blood glucose fluctuation [Unknown]
  - Polyarthritis [Unknown]
  - Peripheral swelling [Unknown]
